FAERS Safety Report 9713312 (Version 1)
Quarter: 2013Q4

REPORT INFORMATION
  Report Type: Spontaneous
  Country: US (occurrence: US)
  Receive Date: 20131126
  Receipt Date: 20131126
  Transmission Date: 20140711
  Serious: Yes (Hospitalization)
  Sender: FDA-Public Use
  Company Number: US-SA-2013SA120219

PATIENT
  Sex: Male

DRUGS (1)
  1. AUBAGIO [Suspect]
     Indication: MULTIPLE SCLEROSIS
     Dates: start: 201307, end: 20130915

REACTIONS (5)
  - Renal failure [Unknown]
  - Loss of consciousness [Unknown]
  - Dehydration [Unknown]
  - Diarrhoea [Unknown]
  - Fall [Unknown]
